FAERS Safety Report 14742810 (Version 5)
Quarter: 2019Q3

REPORT INFORMATION
  Report Type: Spontaneous
  Country: US (occurrence: US)
  Receive Date: 20180410
  Receipt Date: 20190729
  Transmission Date: 20191004
  Serious: Yes (Other)
  Sender: FDA-Public Use
  Company Number: US-PFIZER INC-2018141204

PATIENT
  Age: 59 Year
  Sex: Male

DRUGS (27)
  1. NEXIUM 24HR [Suspect]
     Active Substance: ESOMEPRAZOLE MAGNESIUM
     Dosage: 20 MG, DAILY
     Route: 048
     Dates: start: 198909, end: 201607
  2. PREVACID [Suspect]
     Active Substance: LANSOPRAZOLE
     Dosage: 40 MG, DAILY
     Route: 048
     Dates: start: 198909, end: 201607
  3. PANTOPRAZOLE [Suspect]
     Active Substance: PANTOPRAZOLE
     Indication: DYSPEPSIA
     Dosage: 40 MG, DAILY
     Route: 048
     Dates: start: 20150212, end: 20151212
  4. PREVACID 24 HR [Suspect]
     Active Substance: LANSOPRAZOLE
     Dosage: 15 MG, DAILY
     Dates: start: 2009, end: 2016
  5. CODEINE AND APAP [Concomitant]
     Indication: PAIN
     Dosage: UNK
     Dates: start: 200006, end: 200902
  6. VIOXX [Concomitant]
     Active Substance: ROFECOXIB
     Indication: PAIN
     Dosage: UNK
     Dates: start: 200104, end: 200106
  7. NEXIUM [Suspect]
     Active Substance: ESOMEPRAZOLE MAGNESIUM
     Indication: DYSPEPSIA
     Dosage: 40 MG, DAILY
     Route: 048
     Dates: start: 198909, end: 201607
  8. BIAXIN [Concomitant]
     Active Substance: CLARITHROMYCIN
     Indication: INFECTION PROPHYLAXIS
     Dosage: UNK
     Dates: start: 200012
  9. PROTONIX [Suspect]
     Active Substance: PANTOPRAZOLE SODIUM
     Indication: DYSPEPSIA
     Dosage: UNK
     Route: 048
     Dates: start: 198909, end: 201607
  10. PRILOSEC OTC [Suspect]
     Active Substance: OMEPRAZOLE MAGNESIUM
     Dosage: 20 MG, DAILY
     Route: 048
     Dates: start: 198909, end: 201607
  11. VICOPROFEN [Concomitant]
     Active Substance: HYDROCODONE BITARTRATE\IBUPROFEN
     Indication: PAIN
     Dosage: UNK
     Dates: start: 200103
  12. OMEPRAZOLE. [Suspect]
     Active Substance: OMEPRAZOLE
     Indication: DYSPEPSIA
     Dosage: 40 MG, DAILY
     Route: 048
     Dates: start: 20111116, end: 20120705
  13. CARISOPRODOL. [Concomitant]
     Active Substance: CARISOPRODOL
     Indication: MUSCLE SPASMS
     Dosage: UNK
     Dates: start: 200006, end: 200911
  14. TEMAZEPAM. [Concomitant]
     Active Substance: TEMAZEPAM
     Indication: INSOMNIA
     Dosage: UNK
     Dates: start: 200010, end: 201508
  15. PROZAC [Concomitant]
     Active Substance: FLUOXETINE HYDROCHLORIDE
     Indication: OBSESSIVE-COMPULSIVE DISORDER
     Dosage: UNK
     Dates: start: 200102, end: 200104
  16. DEXILANT [Suspect]
     Active Substance: DEXLANSOPRAZOLE
     Dosage: UNK
     Route: 048
     Dates: start: 198909, end: 201607
  17. HYDROCODONE [Concomitant]
     Active Substance: HYDROCODONE
     Indication: PAIN
     Dosage: UNK
     Dates: start: 200006, end: 201005
  18. AMOXICILLIN. [Concomitant]
     Active Substance: AMOXICILLIN
     Indication: BACTERIAL INFECTION
     Dosage: UNK
     Dates: start: 200011
  19. NEXIUM [Suspect]
     Active Substance: ESOMEPRAZOLE MAGNESIUM
     Dosage: 40 MG, DAILY
     Dates: start: 20100107, end: 20110107
  20. ESOMEPRAZOLE MAGNESIUM. [Suspect]
     Active Substance: ESOMEPRAZOLE MAGNESIUM
     Dosage: UNK
     Route: 048
  21. PRILOSEC [Suspect]
     Active Substance: OMEPRAZOLE MAGNESIUM
     Indication: DYSPEPSIA
     Dosage: 40 MG, DAILY
     Route: 048
     Dates: start: 198909, end: 201607
  22. FAMOTIDINE. [Concomitant]
     Active Substance: FAMOTIDINE
     Dosage: UNK UNK, AS NEEDED
     Dates: start: 2016
  23. LANSOPRAZOLE. [Suspect]
     Active Substance: LANSOPRAZOLE
     Dosage: UNK
     Route: 048
  24. PROTONIX [Suspect]
     Active Substance: PANTOPRAZOLE SODIUM
     Dosage: 40 MG, DAILY
     Dates: start: 20120206, end: 20120306
  25. PREVACID 24 HR [Suspect]
     Active Substance: LANSOPRAZOLE
     Indication: DYSPEPSIA
     Dosage: 15 MG, DAILY
     Route: 048
     Dates: start: 198909, end: 201607
  26. PRILOSEC [Suspect]
     Active Substance: OMEPRAZOLE MAGNESIUM
     Dosage: 40 MG, DAILY
     Dates: start: 2002, end: 2010
  27. DIAZEPAM. [Concomitant]
     Active Substance: DIAZEPAM
     Indication: MUSCLE SPASMS
     Dosage: UNK
     Dates: start: 200007, end: 201508

REACTIONS (3)
  - End stage renal disease [Unknown]
  - Acute kidney injury [Not Recovered/Not Resolved]
  - Chronic kidney disease [Unknown]

NARRATIVE: CASE EVENT DATE: 20160130
